FAERS Safety Report 8578533-6 (Version None)
Quarter: 2012Q2

REPORT INFORMATION
  Report Type: 
  Country: None (occurrence: None)
  Receive Date: 20120423
  Receipt Date: 20100113
  Transmission Date: 20120825
  Serious: Yes (Other)
  Sender: FDA-Public Use
  Company Number: PHEH2009US18628

PATIENT
  Age: 2 Year
  Sex: Male
  Weight: 11.1 kg

DRUGS (1)
  1. EXJADE [Suspect]
     Dosage: 375 MG, QD, ORAL 125 MG, ORAL
     Route: 048
     Dates: start: 20090707, end: 20091125

REACTIONS (4)
  - HAEMATOCHEZIA [None]
  - OCCULT BLOOD POSITIVE [None]
  - ULCER HAEMORRHAGE [None]
  - RECTAL HAEMORRHAGE [None]
